FAERS Safety Report 16677001 (Version 3)
Quarter: 2020Q2

REPORT INFORMATION
  Report Type: Spontaneous
  Country: DE (occurrence: DE)
  Receive Date: 20190807
  Receipt Date: 20200424
  Transmission Date: 20200713
  Serious: Yes (Death, Life-Threatening, Hospitalization, Other)
  Sender: FDA-Public Use
  Company Number: DE-ACCORD-150590

PATIENT
  Age: 33 Year
  Sex: Male

DRUGS (2)
  1. CISPLATIN. [Suspect]
     Active Substance: CISPLATIN
     Indication: CHOLANGIOCARCINOMA
     Dosage: 25 MG/ME2
     Route: 065
  2. GEMCITABINE/GEMCITABINE HYDROCHLORIDE [Suspect]
     Active Substance: GEMCITABINE\GEMCITABINE HYDROCHLORIDE
     Indication: CHOLANGIOCARCINOMA
     Dosage: 500 MG/ME2, DOSE REDUCTION OF 50% DUE TO BILIRUBINEMIA PRIOR TO TREATMENT INITIATION
     Route: 065

REACTIONS (7)
  - Bone marrow failure [Fatal]
  - Febrile neutropenia [Fatal]
  - Enterococcal infection [Fatal]
  - Pancytopenia [Fatal]
  - Enterococcal bacteraemia [Fatal]
  - Off label use [Unknown]
  - Toxicity to various agents [Fatal]
